FAERS Safety Report 8539348-8 (Version None)
Quarter: 2012Q3

REPORT INFORMATION
  Report Type: 
  Country: None (occurrence: None)
  Receive Date: 20120726
  Receipt Date: 20110720
  Transmission Date: 20120928
  Serious: No
  Sender: FDA-Public Use
  Company Number: US-ASTRAZENECA-2011SE43429

PATIENT
  Age: 54 Year
  Sex: Female
  Weight: 68 kg

DRUGS (7)
  1. VITAMIN D [Concomitant]
  2. SYNTHROID [Concomitant]
  3. SEROQUEL [Suspect]
     Route: 048
     Dates: start: 20110601
  4. WELLBUTRIN [Concomitant]
  5. SEROQUEL [Suspect]
     Indication: DEPRESSION
     Route: 048
     Dates: start: 20110501, end: 20110601
  6. SEROQUEL [Suspect]
     Indication: ANXIETY
     Route: 048
     Dates: start: 20110501, end: 20110601
  7. SEROQUEL [Suspect]
     Route: 048
     Dates: start: 20110601

REACTIONS (3)
  - WEIGHT INCREASED [None]
  - OFF LABEL USE [None]
  - SOMNOLENCE [None]
